FAERS Safety Report 5511722-3 (Version None)
Quarter: 2007Q4

REPORT INFORMATION
  Report Type: 
  Country: None (occurrence: None)
  Receive Date: 20071109
  Receipt Date: 20071102
  Transmission Date: 20080405
  Serious: Yes (Disabling, Other)
  Sender: FDA-Public Use
  Company Number: US-SANOFI-SYNTHELABO-A03200704004

PATIENT
  Sex: Female

DRUGS (2)
  1. PLAVIX [Suspect]
     Indication: ATRIAL SEPTAL DEFECT REPAIR
     Route: 048
     Dates: start: 20070202, end: 20070226
  2. ASPIRIN [Concomitant]
     Indication: DRUG USE FOR UNKNOWN INDICATION
     Route: 065

REACTIONS (10)
  - ANAPHYLACTIC REACTION [None]
  - ANGIOEDEMA [None]
  - ARTHRALGIA [None]
  - BLOOD POTASSIUM DECREASED [None]
  - DYSPNOEA [None]
  - HAEMATOCHEZIA [None]
  - MOBILITY DECREASED [None]
  - TRYPTASE INCREASED [None]
  - URTICARIA [None]
  - WALKING DISABILITY [None]
